FAERS Safety Report 18399073 (Version 1)
Quarter: 2020Q4

REPORT INFORMATION
  Report Type: Spontaneous
  Country: US (occurrence: US)
  Receive Date: 20201019
  Receipt Date: 20201019
  Transmission Date: 20210114
  Serious: No
  Sender: FDA-Public Use
  Company Number: US-AMGEN-USASP2020166806

PATIENT
  Sex: Female

DRUGS (7)
  1. RESTASIS [Concomitant]
     Active Substance: CYCLOSPORINE
  2. ZETIA [Concomitant]
     Active Substance: EZETIMIBE
     Dosage: 10 MILLIGRAM
  3. XARELTO [Concomitant]
     Active Substance: RIVAROXABAN
  4. ALENDRONATE SODIUM. [Concomitant]
     Active Substance: ALENDRONATE SODIUM
  5. ASPIRIN [ACETYLSALICYLIC ACID] [Concomitant]
     Active Substance: ASPIRIN
  6. REPATHA [Suspect]
     Active Substance: EVOLOCUMAB
     Indication: TYPE IIA HYPERLIPIDAEMIA
     Dosage: 140 MILLIGRAM PER MILLILITRE, Q2WK
     Route: 058
     Dates: start: 20160115
  7. BONIVA [Concomitant]
     Active Substance: IBANDRONATE SODIUM

REACTIONS (1)
  - Product dose omission issue [Not Recovered/Not Resolved]
